FAERS Safety Report 5901324-9 (Version None)
Quarter: 2008Q3

REPORT INFORMATION
  Report Type: 
  Country: None (occurrence: None)
  Receive Date: 20080929
  Receipt Date: 20080923
  Transmission Date: 20090109
  Serious: Yes (Hospitalization)
  Sender: FDA-Public Use
  Company Number: US-BAYER-200828907NA

PATIENT
  Age: 53 Year
  Sex: Female
  Weight: 66 kg

DRUGS (12)
  1. AVELOX [Suspect]
     Indication: SINUSITIS
     Dosage: TOTAL DAILY DOSE: 400 MG  UNIT DOSE: 400 MG
     Route: 048
     Dates: start: 20070112, end: 20070115
  2. TYLENOL (CAPLET) [Concomitant]
  3. FOSAMAX [Concomitant]
  4. DONNATAL [Concomitant]
  5. MYCOSTATIN [Concomitant]
  6. PROTONIX [Concomitant]
  7. PHENERGAN HCL [Concomitant]
  8. DILAUDID [Concomitant]
  9. ASPIRIN [Concomitant]
     Dosage: TOTAL DAILY DOSE: 81 MG  UNIT DOSE: 81 MG
  10. MULTIVITAMIN (PRESCRIPTION PRENATAL) [Concomitant]
  11. CALCIUM CALTRATE W/ VITAMIN D [Concomitant]
     Dosage: TOTAL DAILY DOSE: 1200 MG
  12. LEXAPRO [Concomitant]

REACTIONS (16)
  - ABDOMINAL DISTENSION [None]
  - ABDOMINAL PAIN [None]
  - ABNORMAL FAECES [None]
  - ATRIAL FIBRILLATION [None]
  - BUNDLE BRANCH BLOCK LEFT [None]
  - CHILLS [None]
  - DECREASED APPETITE [None]
  - DIARRHOEA [None]
  - DYSGEUSIA [None]
  - DYSPNOEA [None]
  - ILEOSTOMY [None]
  - ILEOSTOMY CLOSURE [None]
  - NAUSEA [None]
  - PSEUDOMEMBRANOUS COLITIS [None]
  - PYREXIA [None]
  - TACHYCARDIA [None]
